FAERS Safety Report 7105608-0 (Version None)
Quarter: 2010Q4

REPORT INFORMATION
  Report Type: 
  Country: None (occurrence: None)
  Receive Date: 20101116
  Receipt Date: 20101102
  Transmission Date: 20110411
  Serious: Yes (Hospitalization)
  Sender: FDA-Public Use
  Company Number: US-ACTELION-A-US2010-40266

PATIENT

DRUGS (3)
  1. BOSENTAN TABLET UNKNOWN US MG [Suspect]
     Indication: PULMONARY ARTERIAL HYPERTENSION
     Dosage: UNK
     Route: 048
     Dates: start: 20091029
  2. CALCIUM CHANNEL BLOCKERS [Concomitant]
  3. ATENOLOL [Concomitant]

REACTIONS (4)
  - CHEST PAIN [None]
  - HEART RATE DECREASED [None]
  - HYPERTENSION [None]
  - SYNCOPE [None]
